FAERS Safety Report 4488693-4 (Version None)
Quarter: 2004Q4

REPORT INFORMATION
  Report Type: 
  Country: None (occurrence: None)
  Receive Date: 20041025
  Receipt Date: 20041011
  Transmission Date: 20050328
  Serious: Yes (Other)
  Sender: FDA-Public Use
  Company Number: 239068

PATIENT
  Age: 72 Year
  Sex: Male
  Weight: 94 kg

DRUGS (4)
  1. NOVOMIX 30 FLEX PEN (INSULIN ASPART) SUSPENSION FOR INJECTION, 100U/ML [Suspect]
     Indication: DIABETES MELLITUS INSULIN-DEPENDENT
     Dosage: 20 IU, QD
     Dates: start: 20040709, end: 20040711
  2. AMLODIPINE BESYLATE [Concomitant]
  3. ZESTORETIC (LISINOPRIL DIHYDRATE, HYDROCHLOROTHIAZIDE) [Concomitant]
  4. CLONAZEPAM [Concomitant]

REACTIONS (12)
  - BALANCE DISORDER [None]
  - DEPRESSED LEVEL OF CONSCIOUSNESS [None]
  - EYE PAIN [None]
  - HEADACHE [None]
  - HOT FLUSH [None]
  - NAUSEA [None]
  - NECK PAIN [None]
  - NEUROPATHY [None]
  - PAIN IN EXTREMITY [None]
  - PARAESTHESIA [None]
  - TACHYCARDIA [None]
  - TINNITUS [None]
